FAERS Safety Report 26038436 (Version 1)
Quarter: 2025Q4

REPORT INFORMATION
  Report Type: Spontaneous
  Country: JP (occurrence: JP)
  Receive Date: 20251113
  Receipt Date: 20251113
  Transmission Date: 20260118
  Serious: Yes (Other)
  Sender: ASTELLAS
  Company Number: JP-ASTELLAS-2025-AER-061301

PATIENT
  Age: 54 Year
  Sex: Female

DRUGS (19)
  1. PROGRAF [Suspect]
     Active Substance: TACROLIMUS
     Indication: Cord blood transplant therapy
     Route: 065
     Dates: start: 202005
  2. PROGRAF [Suspect]
     Active Substance: TACROLIMUS
     Route: 065
     Dates: start: 202110
  3. VINCRISTINE [Concomitant]
     Active Substance: VINCRISTINE
     Indication: Adult T-cell lymphoma/leukaemia
     Route: 065
     Dates: start: 2020
  4. VINCRISTINE [Concomitant]
     Active Substance: VINCRISTINE
     Indication: Adult T-cell lymphoma/leukaemia recurrent
     Route: 065
     Dates: start: 2021
  5. CYCLOPHOSPHAMIDE [Concomitant]
     Active Substance: CYCLOPHOSPHAMIDE
     Indication: Adult T-cell lymphoma/leukaemia
     Route: 065
     Dates: start: 2020
  6. CYCLOPHOSPHAMIDE [Concomitant]
     Active Substance: CYCLOPHOSPHAMIDE
     Indication: Adult T-cell lymphoma/leukaemia recurrent
     Route: 065
     Dates: start: 2021
  7. DOXORUBICIN [Concomitant]
     Active Substance: DOXORUBICIN
     Indication: Adult T-cell lymphoma/leukaemia
     Route: 065
     Dates: start: 2020
  8. DOXORUBICIN [Concomitant]
     Active Substance: DOXORUBICIN
     Indication: Adult T-cell lymphoma/leukaemia recurrent
     Route: 065
     Dates: start: 2021
  9. PREDNISOLONE [Concomitant]
     Active Substance: PREDNISOLONE
     Indication: Adult T-cell lymphoma/leukaemia
     Route: 065
     Dates: start: 2020
  10. PREDNISOLONE [Concomitant]
     Active Substance: PREDNISOLONE
     Indication: Adult T-cell lymphoma/leukaemia recurrent
     Route: 065
     Dates: start: 2021
  11. FLUDARABINE [Concomitant]
     Active Substance: FLUDARABINE PHOSPHATE
     Indication: Cord blood transplant therapy
     Route: 065
     Dates: start: 202005
  12. FLUDARABINE [Concomitant]
     Active Substance: FLUDARABINE PHOSPHATE
     Route: 065
     Dates: start: 202110
  13. MELPHALAN [Concomitant]
     Active Substance: MELPHALAN
     Indication: Cord blood transplant therapy
     Route: 065
     Dates: start: 202005
  14. MELPHALAN [Concomitant]
     Active Substance: MELPHALAN
     Route: 065
     Dates: start: 202110
  15. BUSULFAN [Concomitant]
     Active Substance: BUSULFAN
     Indication: Cord blood transplant therapy
     Route: 065
     Dates: start: 202005
  16. CYTARABINE [Concomitant]
     Active Substance: CYTARABINE
     Indication: Cord blood transplant therapy
     Route: 065
     Dates: start: 202005
  17. MYCOPHENOLATE MOFETIL [Concomitant]
     Active Substance: MYCOPHENOLATE MOFETIL
     Indication: Cord blood transplant therapy
     Route: 065
     Dates: start: 202005
  18. MYCOPHENOLATE MOFETIL [Concomitant]
     Active Substance: MYCOPHENOLATE MOFETIL
     Route: 065
     Dates: start: 202110
  19. LENALIDOMIDE [Concomitant]
     Active Substance: LENALIDOMIDE
     Indication: Mass
     Route: 065
     Dates: start: 202103

REACTIONS (5)
  - Pre-engraftment immune reaction [Unknown]
  - Acute graft versus host disease [Unknown]
  - Adult T-cell lymphoma/leukaemia recurrent [Recovering/Resolving]
  - Adult T-cell lymphoma/leukaemia recurrent [Unknown]
  - Adult T-cell lymphoma/leukaemia recurrent [Recovering/Resolving]

NARRATIVE: CASE EVENT DATE: 20210101
